FAERS Safety Report 15233392 (Version 2)
Quarter: 2019Q2

REPORT INFORMATION
  Report Type: Spontaneous
  Country: CA (occurrence: CA)
  Receive Date: 20180802
  Receipt Date: 20190618
  Transmission Date: 20190711
  Serious: Yes (Other)
  Sender: FDA-Public Use
  Company Number: CA-TEVA-2018-CA-934154

PATIENT
  Age: 44 Year
  Sex: Male

DRUGS (5)
  1. IBUPROFEN. [Suspect]
     Active Substance: IBUPROFEN
     Dosage: FREQUENCY: ONCE
     Route: 048
  2. ATIVAN [Concomitant]
     Active Substance: LORAZEPAM
     Route: 065
  3. CLOZAPINE. [Concomitant]
     Active Substance: CLOZAPINE
  4. LYRICA [Concomitant]
     Active Substance: PREGABALIN
  5. FLOMAX [Concomitant]
     Active Substance: TAMSULOSIN HYDROCHLORIDE

REACTIONS (4)
  - Back pain [Unknown]
  - Pain [Unknown]
  - Abdominal pain [Unknown]
  - Urinary retention [Unknown]
